FAERS Safety Report 5806394-4 (Version None)
Quarter: 2008Q3

REPORT INFORMATION
  Report Type: 
  Country: None (occurrence: None)
  Receive Date: 20080708
  Receipt Date: 20080627
  Transmission Date: 20090109
  Serious: Yes (Other)
  Sender: FDA-Public Use
  Company Number: CHPA2008US10622

PATIENT
  Age: 18 Year
  Sex: Male

DRUGS (1)
  1. EXCEDRIN EXTRA STRENGTH (NCH) (CAFFEINE CITRATE, ACETYSALICYLIC ACID, [Suspect]
     Indication: HEADACHE
     Dosage: 2 TABLETS, 3 TO 4 TIMES DAILY, ORAL; 10 DF, QD, ORAL
     Route: 048
     Dates: start: 20080626, end: 20080626

REACTIONS (3)
  - DRUG DEPENDENCE [None]
  - HEADACHE [None]
  - OVERDOSE [None]
